FAERS Safety Report 25739340 (Version 2)
Quarter: 2025Q4

REPORT INFORMATION
  Report Type: Spontaneous
  Country: US (occurrence: US)
  Receive Date: 20250829
  Receipt Date: 20251021
  Transmission Date: 20260118
  Serious: Yes (Hospitalization)
  Sender: GERON CORP
  Company Number: US-GERON CORPORATION-US-GER-25-000186

PATIENT
  Age: 75 Year
  Sex: Male

DRUGS (2)
  1. RYTELO [Suspect]
     Active Substance: IMETELSTAT SODIUM
     Indication: Myelodysplastic syndrome
     Dosage: UNK, UNK
     Route: 065
  2. RYTELO [Suspect]
     Active Substance: IMETELSTAT SODIUM
     Dosage: UNK, UNK
     Route: 065

REACTIONS (6)
  - Red blood cell count decreased [Not Recovered/Not Resolved]
  - Haemoglobin decreased [Not Recovered/Not Resolved]
  - Gingivitis [Not Recovered/Not Resolved]
  - Dyspnoea [Not Recovered/Not Resolved]
  - Ill-defined disorder [Not Recovered/Not Resolved]
  - Headache [Not Recovered/Not Resolved]

NARRATIVE: CASE EVENT DATE: 20250701
